FAERS Safety Report 13864793 (Version 1)
Quarter: 2017Q3

REPORT INFORMATION
  Report Type: Spontaneous
  Country: US (occurrence: None)
  Receive Date: 20170814
  Receipt Date: 20170814
  Transmission Date: 20171127
  Serious: Yes (Life-Threatening, Other)
  Sender: FDA-Public Use
  Company Number: None

PATIENT
  Age: 61 Year
  Sex: Male
  Weight: 70.3 kg

DRUGS (1)
  1. GLIPIZIDE. [Suspect]
     Active Substance: GLIPIZIDE
     Indication: DIABETES MELLITUS
     Dosage: OTHER
     Route: 048
     Dates: start: 20110826, end: 20170502

REACTIONS (2)
  - Hypoglycaemia [None]
  - Hypoglycaemia unawareness [None]

NARRATIVE: CASE EVENT DATE: 20170502
